FAERS Safety Report 4835364-8 (Version None)
Quarter: 2005Q4

REPORT INFORMATION
  Report Type: 
  Country: None (occurrence: None)
  Receive Date: 20051114
  Receipt Date: 20051104
  Transmission Date: 20060501
  Serious: Yes (Other)
  Sender: FDA-Public Use
  Company Number: USA0511112836

PATIENT
  Sex: Male
  Weight: 41 kg

DRUGS (2)
  1. STRATTERA [Suspect]
     Indication: EDUCATIONAL PROBLEM
     Dates: start: 20030101
  2. SINGULAIR [Concomitant]

REACTIONS (5)
  - CARDIAC OPERATION [None]
  - EDUCATIONAL PROBLEM [None]
  - FATIGUE [None]
  - HYPERTENSION [None]
  - WEIGHT INCREASED [None]
